FAERS Safety Report 6125201-6 (Version None)
Quarter: 2009Q1

REPORT INFORMATION
  Report Type: 
  Country: None (occurrence: None)
  Receive Date: 20090318
  Receipt Date: 20090312
  Transmission Date: 20090719
  Serious: Yes (Hospitalization)
  Sender: FDA-Public Use
  Company Number: 2009SP004670

PATIENT
  Age: 57 Year
  Sex: Male
  Weight: 55 kg

DRUGS (4)
  1. PEG-INTRON [Suspect]
     Indication: HEPATITIS C
     Dosage: 100 MCG;QW;SC ; 100 MCG;QW;SC
     Route: 058
     Dates: start: 20081223, end: 20090223
  2. PEG-INTRON [Suspect]
     Indication: HEPATITIS C
     Dosage: 100 MCG;QW;SC ; 100 MCG;QW;SC
     Route: 058
     Dates: start: 20090309
  3. REBETOL [Suspect]
     Indication: HEPATITIS C
     Dosage: 800 MG;QD;PO ; 500 MG;QD;PO
     Route: 048
     Dates: start: 20081223, end: 20090226
  4. REBETOL [Suspect]
     Indication: HEPATITIS C
     Dosage: 800 MG;QD;PO ; 500 MG;QD;PO
     Route: 048
     Dates: start: 20090227

REACTIONS (3)
  - DIABETIC KETOACIDOSIS [None]
  - GLUCOSE TOLERANCE IMPAIRED [None]
  - WEIGHT DECREASED [None]
